FAERS Safety Report 6819414-5 (Version None)
Quarter: 2010Q3

REPORT INFORMATION
  Report Type: 
  Country: None (occurrence: None)
  Receive Date: 20100707
  Receipt Date: 20100629
  Transmission Date: 20110219
  Serious: Yes (Death)
  Sender: FDA-Public Use
  Company Number: GB-PFIZER INC-2010080916

PATIENT
  Age: 51 Year
  Sex: Female

DRUGS (1)
  1. SUNITINIB MALATE [Suspect]
     Indication: MALIGNANT NEOPLASM OF ISLETS OF LANGERHANS
     Dosage: 50 MG, 1X/DAY
     Route: 048
     Dates: start: 20080401, end: 20100601

REACTIONS (2)
  - DEATH [None]
  - METASTASES TO BONE [None]
